FAERS Safety Report 5837468-X (Version None)
Quarter: 2008Q3

REPORT INFORMATION
  Report Type: 
  Country: None (occurrence: None)
  Receive Date: 20080807
  Receipt Date: 20080804
  Transmission Date: 20090109
  Serious: Yes (Hospitalization)
  Sender: FDA-Public Use
  Company Number: US-ELI_LILLY_AND_COMPANY-US200807002495

PATIENT
  Sex: Female

DRUGS (4)
  1. BYETTA [Suspect]
     Indication: DIABETES MELLITUS
     Dosage: 5 UG, 2/D
     Dates: start: 20020101
  2. PREVACID [Concomitant]
     Dosage: 30 MG, 2/D
  3. HUMALOG [Concomitant]
     Indication: DIABETES MELLITUS
  4. FORTEO [Concomitant]
     Dates: start: 20080601

REACTIONS (8)
  - EXTRADURAL HAEMATOMA [None]
  - FOOT FRACTURE [None]
  - GASTRIC ULCER [None]
  - GENERAL PHYSICAL HEALTH DETERIORATION [None]
  - QUADRIPARESIS [None]
  - SPINAL FUSION SURGERY [None]
  - THORACOTOMY [None]
  - UPPER LIMB FRACTURE [None]
